FAERS Safety Report 20697566 (Version 1)
Quarter: 2022Q2

REPORT INFORMATION
  Report Type: Spontaneous
  Country: GB (occurrence: GB)
  Receive Date: 20220411
  Receipt Date: 20220411
  Transmission Date: 20220720
  Serious: No
  Sender: FDA-Public Use
  Company Number: GB-LUPIN PHARMACEUTICALS INC.-2022-05106

PATIENT
  Sex: Male

DRUGS (3)
  1. GABAPENTIN [Suspect]
     Active Substance: GABAPENTIN
     Indication: Hereditary spastic paraplegia
     Dosage: UNK
     Route: 048
  2. LEVODOPA [Suspect]
     Active Substance: LEVODOPA
     Indication: Hereditary spastic paraplegia
     Dosage: UNK
     Route: 048
  3. BACLOFEN [Suspect]
     Active Substance: BACLOFEN
     Indication: Hereditary spastic paraplegia
     Dosage: UNK
     Route: 048

REACTIONS (2)
  - Abnormal behaviour [Unknown]
  - Off label use [Unknown]
